FAERS Safety Report 13881124 (Version 2)
Quarter: 2017Q3

REPORT INFORMATION
  Report Type: Spontaneous
  Country: AU (occurrence: AU)
  Receive Date: 20170818
  Receipt Date: 20170914
  Transmission Date: 20171127
  Serious: Yes (Life-Threatening, Hospitalization, Disabling, Other)
  Sender: FDA-Public Use
  Company Number: AU-ROCHE-1975046

PATIENT
  Sex: Female

DRUGS (4)
  1. NUROFEN PLUS [Concomitant]
     Active Substance: CODEINE PHOSPHATE\IBUPROFEN
     Indication: INTERVERTEBRAL DISC PROTRUSION
  2. METHAMPHETAMINE [Suspect]
     Active Substance: METHAMPHETAMINE
     Indication: PRODUCT USED FOR UNKNOWN INDICATION
     Route: 065
  3. VALIUM [Suspect]
     Active Substance: DIAZEPAM
     Indication: ANXIETY
     Route: 065
  4. CODEINE [Suspect]
     Active Substance: CODEINE
     Indication: PAIN
     Route: 065

REACTIONS (17)
  - Feelings of worthlessness [Unknown]
  - Weight increased [Unknown]
  - Catatonia [Unknown]
  - Suicidal ideation [Unknown]
  - Brain injury [Not Recovered/Not Resolved]
  - Dependence [Unknown]
  - Hallucination, auditory [Unknown]
  - Aggression [Unknown]
  - Suicide attempt [Unknown]
  - Anxiety disorder [Unknown]
  - Drug dependence [Unknown]
  - Immobile [Unknown]
  - Depression [Unknown]
  - Psychotic disorder [Unknown]
  - Feeling abnormal [Unknown]
  - Post-traumatic stress disorder [Unknown]
  - Fatigue [Unknown]
